FAERS Safety Report 6935861-5 (Version None)
Quarter: 2010Q3

REPORT INFORMATION
  Report Type: 
  Country: None (occurrence: None)
  Receive Date: 20100816
  Receipt Date: 20090623
  Transmission Date: 20110219
  Serious: No
  Sender: FDA-Public Use
  Company Number: 2009-00167

PATIENT
  Age: 44 Year
  Sex: Male
  Weight: 72.5755 kg

DRUGS (2)
  1. ZICAM COLD REMEDY NASAL GEL [Suspect]
     Dosage: QID X A FEW DAYS
     Dates: start: 20080101, end: 20080101
  2. LIPITOR [Concomitant]

REACTIONS (2)
  - AGEUSIA [None]
  - ANOSMIA [None]
